FAERS Safety Report 7901520-5 (Version None)
Quarter: 2011Q4

REPORT INFORMATION
  Report Type: 
  Country: None (occurrence: None)
  Receive Date: 20111104
  Receipt Date: 20111024
  Transmission Date: 20120403
  Serious: Yes (Hospitalization)
  Sender: FDA-Public Use
  Company Number: TCI2011A05008

PATIENT
  Age: 63 Year
  Sex: Male

DRUGS (2)
  1. ACTOS [Suspect]
     Indication: TYPE 2 DIABETES MELLITUS
     Dosage: 15 MG (15 MG, 1 IN 1 D) PER ORAL, 30 MG (30 MG, 1 IN 1 D) PER ORAL
     Route: 048
     Dates: start: 20090107
  2. ACTOS [Suspect]
     Indication: TYPE 2 DIABETES MELLITUS
     Dosage: 15 MG (15 MG, 1 IN 1 D) PER ORAL, 30 MG (30 MG, 1 IN 1 D) PER ORAL
     Route: 048
     Dates: start: 20080218, end: 20090106

REACTIONS (1)
  - LUNG NEOPLASM MALIGNANT [None]
